FAERS Safety Report 24211820 (Version 4)
Quarter: 2025Q1

REPORT INFORMATION
  Report Type: Spontaneous
  Country: US (occurrence: US)
  Receive Date: 20240814
  Receipt Date: 20250109
  Transmission Date: 20250409
  Serious: Yes (Death, Hospitalization)
  Sender: NOVARTIS
  Company Number: US-002147023-NVSC2024US165246

PATIENT
  Age: 90 Year
  Sex: Female
  Weight: 49 kg

DRUGS (1)
  1. FABHALTA [Suspect]
     Active Substance: IPTACOPAN HYDROCHLORIDE
     Indication: Paroxysmal nocturnal haemoglobinuria
     Dosage: 200 MG, BID
     Route: 048
     Dates: start: 20240520

REACTIONS (6)
  - Death [Fatal]
  - Haemoglobin decreased [Unknown]
  - Influenza [Unknown]
  - Dyspnoea [Unknown]
  - Dysania [Unknown]
  - Gait disturbance [Unknown]

NARRATIVE: CASE EVENT DATE: 20240808
